FAERS Safety Report 8608376-6 (Version None)
Quarter: 2012Q3

REPORT INFORMATION
  Report Type: 
  Country: None (occurrence: None)
  Receive Date: 20120821
  Receipt Date: 20120816
  Transmission Date: 20120928
  Serious: Yes (Other)
  Sender: FDA-Public Use
  Company Number: BR-ABBOTT-12P-020-0969440-00

PATIENT
  Sex: Female

DRUGS (2)
  1. DEPAKOTE [Suspect]
     Indication: CONVULSION
     Dosage: 1000MG DAILY
  2. DEPAKOTE [Suspect]
     Dosage: 1500MG DAILY

REACTIONS (2)
  - CONVULSION [None]
  - STRESS [None]
